FAERS Safety Report 5332403-5 (Version None)
Quarter: 2007Q2

REPORT INFORMATION
  Report Type: 
  Country: None (occurrence: None)
  Receive Date: 20070522
  Receipt Date: 20070522
  Transmission Date: 20071010
  Serious: Yes (Other)
  Sender: FDA-Public Use
  Company Number: None

PATIENT
  Sex: Female
  Weight: 62.1428 kg

DRUGS (7)
  1. PAROXETINE [Suspect]
     Indication: DEPRESSION
     Dosage: 20 MG 1 QD PO
     Route: 048
     Dates: start: 20070411
  2. PAROXETINE [Suspect]
     Indication: GENERALISED ANXIETY DISORDER
     Dosage: 20 MG 1 QD PO
     Route: 048
     Dates: start: 20070411
  3. PREMARIN [Concomitant]
  4. AVAPRO [Concomitant]
  5. FOSAMAX [Concomitant]
  6. LESCOL XL [Concomitant]
  7. ACIPHEX [Concomitant]

REACTIONS (4)
  - EYE PRURITUS [None]
  - LACRIMATION INCREASED [None]
  - RASH GENERALISED [None]
  - RASH PRURITIC [None]
